FAERS Safety Report 23837589 (Version 1)
Quarter: 2024Q2

REPORT INFORMATION
  Report Type: Spontaneous
  Country: US (occurrence: None)
  Receive Date: 20240508
  Receipt Date: 20240508
  Transmission Date: 20240715
  Serious: Yes (Hospitalization)
  Sender: FDA-Public Use
  Company Number: None

PATIENT
  Age: 72 Year
  Sex: Female

DRUGS (5)
  1. OPSUMIT [Suspect]
     Active Substance: MACITENTAN
     Dosage: FREQUENCY : DAILY;?
     Route: 048
     Dates: start: 202105
  2. SENNA [Concomitant]
  3. BUMETANIDE. [Concomitant]
  4. SILDENAFIL [Concomitant]
  5. ORENCIA CLUCKJECT AUTOINJ [Concomitant]

REACTIONS (2)
  - Fluid retention [None]
  - Constipation [None]

NARRATIVE: CASE EVENT DATE: 20240501
